FAERS Safety Report 25872966 (Version 1)
Quarter: 2025Q4

REPORT INFORMATION
  Report Type: Report from Study
  Country: GB (occurrence: GB)
  Receive Date: 20251002
  Receipt Date: 20251002
  Transmission Date: 20260119
  Serious: Yes (Other)
  Sender: GILEAD
  Company Number: GB-GILEAD-2025-0730587

PATIENT
  Age: 37 Year
  Sex: Male

DRUGS (1)
  1. SOFOSBUVIR\VELPATASVIR [Suspect]
     Active Substance: SOFOSBUVIR\VELPATASVIR
     Indication: Hepatitis D
     Dosage: 400 MG/100 MG FILM COATED TABLETS PK28
     Route: 065
     Dates: start: 202508

REACTIONS (2)
  - Loss of consciousness [Unknown]
  - Product use in unapproved indication [Not Recovered/Not Resolved]
